FAERS Safety Report 13415435 (Version 2)
Quarter: 2017Q3

REPORT INFORMATION
  Report Type: Spontaneous
  Country: US (occurrence: US)
  Receive Date: 20170407
  Receipt Date: 20170712
  Transmission Date: 20171127
  Serious: No
  Sender: FDA-Public Use
  Company Number: US-ALKERMES INC.-ALK-2017-001132

PATIENT
  Age: 65 Year
  Sex: Male
  Weight: 74.83 kg

DRUGS (1)
  1. ARISTADA [Suspect]
     Active Substance: ARIPIPRAZOLE LAUROXIL
     Indication: BIPOLAR DISORDER
     Dosage: 882 MG, QMO
     Route: 030

REACTIONS (3)
  - Injection site induration [Recovered/Resolved]
  - Off label use [Unknown]
  - Injection site mass [Recovered/Resolved]
